FAERS Safety Report 6218259-7 (Version None)
Quarter: 2009Q2

REPORT INFORMATION
  Report Type: 
  Country: None (occurrence: None)
  Receive Date: 20090608
  Receipt Date: 20090528
  Transmission Date: 20091009
  Serious: Yes (Hospitalization, Other)
  Sender: FDA-Public Use
  Company Number: US-BIOGENIDEC-2009BI012774

PATIENT
  Age: 9 Year
  Sex: Male
  Weight: 75 kg

DRUGS (4)
  1. AVONEX [Suspect]
     Indication: MULTIPLE SCLEROSIS
     Route: 030
     Dates: start: 20060101, end: 20080801
  2. STEROID [NOS] [Concomitant]
     Indication: UVEITIS
     Route: 031
  3. ACETAMINOPHEN [Concomitant]
     Indication: DRUG USE FOR UNKNOWN INDICATION
  4. IBUPROFEN [Concomitant]
     Indication: PREMEDICATION

REACTIONS (27)
  - ANXIETY [None]
  - ASPIRATION JOINT [None]
  - BRUXISM [None]
  - COMPULSIONS [None]
  - DYSPHAGIA [None]
  - ERYTHEMA [None]
  - FALL [None]
  - FATIGUE [None]
  - GAIT DISTURBANCE [None]
  - GASTROENTERITIS [None]
  - HEPATIC ENZYME INCREASED [None]
  - HEPATIC STEATOSIS [None]
  - INFLUENZA LIKE ILLNESS [None]
  - IRRITABILITY [None]
  - LETHARGY [None]
  - MUSCULOSKELETAL DISCOMFORT [None]
  - PAIN IN EXTREMITY [None]
  - PARAESTHESIA [None]
  - PYREXIA [None]
  - QUALITY OF LIFE DECREASED [None]
  - RESTLESS LEGS SYNDROME [None]
  - SINUSITIS [None]
  - SKIN DISORDER [None]
  - UPPER RESPIRATORY TRACT CONGESTION [None]
  - VISION BLURRED [None]
  - VISUAL IMPAIRMENT [None]
  - VITREOUS OPACITIES [None]
